FAERS Safety Report 23462300 (Version 1)
Quarter: 2024Q1

REPORT INFORMATION
  Report Type: Spontaneous
  Country: GB (occurrence: None)
  Receive Date: 20240131
  Receipt Date: 20240131
  Transmission Date: 20240409
  Serious: Yes (Other)
  Sender: FDA-Public Use
  Company Number: GB-ROCHE-3499568

PATIENT

DRUGS (1)
  1. GLOFITAMAB [Suspect]
     Active Substance: GLOFITAMAB
     Indication: Product used for unknown indication
     Route: 065

REACTIONS (1)
  - Disease progression [Unknown]
